FAERS Safety Report 7967150-4 (Version None)
Quarter: 2011Q4

REPORT INFORMATION
  Report Type: 
  Country: None (occurrence: None)
  Receive Date: 20111206
  Receipt Date: 20111110
  Transmission Date: 20120403
  Serious: Yes (Other)
  Sender: FDA-Public Use
  Company Number: GB-DEXPHARM-20111723

PATIENT
  Age: 52 Year
  Sex: Male

DRUGS (2)
  1. DICLOFENAC [Suspect]
     Dates: start: 20110908
  2. PROXICAM [Concomitant]

REACTIONS (2)
  - ANTISOCIAL BEHAVIOUR [None]
  - DISINHIBITION [None]
